FAERS Safety Report 8860042 (Version 1)
Quarter: 2012Q4

REPORT INFORMATION
  Report Type: 
  Country: US (occurrence: US)
  Receive Date: 20121025
  Receipt Date: 20121025
  Transmission Date: 20130627
  Serious: Yes (Other)
  Sender: FDA-Public Use
  Company Number: US-SANOFI-AVENTIS-2012SA077398

PATIENT
  Age: 19 Year

DRUGS (4)
  1. DOCETAXEL [Suspect]
     Indication: RHABDOMYOSARCOMA
     Dosage: diluted in 50-250 ml saline and infused over 60 mins on day 8 of 3 weeks cycle; received 2 cycles
     Route: 042
  2. GEMCITABINE [Suspect]
     Indication: RHABDOMYOSARCOMA
     Dosage: diluted in 100-300 ml saline ; intravenously infused over 90 mins on days 1 and 8 of 3 weeks cycle
     Route: 042
  3. CORTICOSTEROID NOS [Concomitant]
  4. SALINE [Concomitant]
     Dosage: -100-300 ml for gemcitabine
-100-300 ml for docetaxel

REACTIONS (2)
  - Hypercalcaemia [Unknown]
  - Blood creatinine increased [Unknown]
